FAERS Safety Report 8215447-5 (Version None)
Quarter: 2012Q1

REPORT INFORMATION
  Report Type: 
  Country: None (occurrence: None)
  Receive Date: 20120316
  Receipt Date: 20120301
  Transmission Date: 20120608
  Serious: Yes (Hospitalization)
  Sender: FDA-Public Use
  Company Number: JP-ROCHE-1030546

PATIENT
  Sex: Male
  Weight: 72 kg

DRUGS (14)
  1. COPEGUS [Suspect]
     Route: 048
     Dates: start: 20111101
  2. REBAMIPIDE [Concomitant]
  3. GASCON [Concomitant]
  4. COPEGUS [Suspect]
     Indication: HEPATITIS C
     Route: 048
     Dates: start: 20111018, end: 20111206
  5. LOXOPROFEN SODIUM [Concomitant]
  6. PLETAL [Concomitant]
  7. LOCHOL (JAPAN) [Concomitant]
  8. COPEGUS [Suspect]
     Route: 048
     Dates: start: 20111107, end: 20111205
  9. AMLODIPINE [Concomitant]
  10. PEGINTERFERON ALFA-2A [Suspect]
     Indication: HEPATITIS C
     Dosage: FORM OF ADMINISTRATION: SPI
     Route: 058
     Dates: start: 20111018, end: 20111206
  11. OLMESARTAN MEDOXOMIL [Concomitant]
  12. BLINDED BI 201335 (HCV PROTEASE INHIBITOR) [Suspect]
     Indication: HEPATITIS C
     Route: 048
     Dates: start: 20111018, end: 20111205
  13. RINDERON-V [Concomitant]
  14. TENORMIN [Concomitant]

REACTIONS (5)
  - BRAIN CONTUSION [None]
  - ANAEMIA [None]
  - SUBDURAL HAEMATOMA [None]
  - FALL [None]
  - FRACTURE [None]
